FAERS Safety Report 14208615 (Version 1)
Quarter: 2017Q4

REPORT INFORMATION
  Report Type: Spontaneous
  Country: US (occurrence: None)
  Receive Date: 20171120
  Receipt Date: 20171120
  Transmission Date: 20180321
  Serious: No
  Sender: FDA-Public Use
  Company Number: None

PATIENT
  Sex: Female

DRUGS (1)
  1. TALTZ [Suspect]
     Active Substance: IXEKIZUMAB
     Indication: PSORIASIS
     Dosage: 80MG Q2WKS SUQ
     Route: 058
     Dates: start: 20171027

REACTIONS (4)
  - Needle issue [None]
  - Incorrect dose administered [None]
  - Vomiting [None]
  - Device malfunction [None]
